FAERS Safety Report 5468001-2 (Version None)
Quarter: 2007Q3

REPORT INFORMATION
  Report Type: 
  Country: None (occurrence: None)
  Receive Date: 20070926
  Receipt Date: 20070917
  Transmission Date: 20080115
  Serious: Yes (Other)
  Sender: FDA-Public Use
  Company Number: HQWYE312831JUL07

PATIENT
  Sex: Male

DRUGS (3)
  1. EUPANTOL [Suspect]
     Indication: GASTRITIS
     Route: 048
     Dates: start: 20070709, end: 20070710
  2. EUPANTOL [Suspect]
     Indication: DUODENITIS
     Route: 048
     Dates: start: 20070711, end: 20070716
  3. EUPANTOL [Suspect]
     Indication: HAEMOPTYSIS

REACTIONS (3)
  - DERMATITIS BULLOUS [None]
  - HEADACHE [None]
  - PURPURA [None]
